FAERS Safety Report 18768274 (Version 1)
Quarter: 2021Q1

REPORT INFORMATION
  Report Type: Spontaneous
  Country: US (occurrence: US)
  Receive Date: 20210121
  Receipt Date: 20210121
  Transmission Date: 20210419
  Serious: No
  Sender: FDA-Public Use
  Company Number: US-SA-2021SA017051

PATIENT
  Age: 49 Year
  Sex: Male

DRUGS (6)
  1. DUPIXENT [Suspect]
     Active Substance: DUPILUMAB
     Indication: DERMATITIS ATOPIC
     Dosage: 300 MG, QOW
     Route: 058
     Dates: start: 20201216
  2. SILDENAFIL [SILDENAFIL CITRATE] [Concomitant]
     Active Substance: SILDENAFIL CITRATE
  3. KETOCONAZOLE TEVA [Concomitant]
     Active Substance: KETOCONAZOLE
  4. KETOCONAZOLE. [Concomitant]
     Active Substance: KETOCONAZOLE
  5. ATORVASTATIN [Concomitant]
     Active Substance: ATORVASTATIN
  6. CLOBETASOL [CLOBETASOL PROPIONATE] [Concomitant]

REACTIONS (1)
  - Dermatitis atopic [Not Recovered/Not Resolved]
